FAERS Safety Report 6838157-5 (Version None)
Quarter: 2010Q3

REPORT INFORMATION
  Report Type: 
  Country: None (occurrence: None)
  Receive Date: 20100713
  Receipt Date: 20070601
  Transmission Date: 20110219
  Serious: No
  Sender: FDA-Public Use
  Company Number: US-PFIZER INC-2007046425

PATIENT
  Sex: Female
  Weight: 53.6 kg

DRUGS (4)
  1. CHANTIX [Suspect]
     Indication: SMOKING CESSATION THERAPY
     Route: 048
     Dates: start: 20070529
  2. PRILOSEC [Concomitant]
  3. HYDROCHLOROTHIAZIDE [Concomitant]
  4. YASMIN [Concomitant]

REACTIONS (3)
  - DRUG INEFFECTIVE [None]
  - FOOD AVERSION [None]
  - SOMNOLENCE [None]
